FAERS Safety Report 12753450 (Version 1)
Quarter: 2016Q3

REPORT INFORMATION
  Report Type: Other
  Country: JP (occurrence: JP)
  Receive Date: 20160916
  Receipt Date: 20160916
  Transmission Date: 20161109
  Serious: Yes (Other)
  Sender: FDA-Public Use
  Company Number: JP-LUPIN PHARMACEUTICALS INC.-2016-04138

PATIENT
  Age: 69 Year
  Sex: Male

DRUGS (3)
  1. VANCOMYCIN [Suspect]
     Active Substance: VANCOMYCIN
     Indication: PNEUMONIA
     Route: 065
  2. TAZOBACTAM-PIPERACILLIN [Concomitant]
     Indication: PNEUMONIA
     Route: 065
  3. AMPICILLIN AND SULBACTAM [Concomitant]
     Active Substance: AMPICILLIN SODIUM\SULBACTAM SODIUM
     Indication: PROPHYLAXIS
     Route: 065

REACTIONS (3)
  - Renal impairment [Unknown]
  - Generalised oedema [Unknown]
  - Drug level increased [Unknown]
